FAERS Safety Report 4667984-8 (Version None)
Quarter: 2005Q2

REPORT INFORMATION
  Report Type: 
  Country: None (occurrence: None)
  Receive Date: 20050520
  Receipt Date: 20050330
  Transmission Date: 20051028
  Serious: Yes (Life-Threatening, Other)
  Sender: FDA-Public Use
  Company Number: US-AMGEN-KDL129179

PATIENT
  Sex: Female

DRUGS (2)
  1. ENBREL [Suspect]
     Indication: PSORIATIC ARTHROPATHY
     Route: 058
     Dates: start: 20030206, end: 20050401
  2. METHOTREXATE [Concomitant]
     Route: 048
     Dates: start: 20020101

REACTIONS (2)
  - ANAPHYLACTIC SHOCK [None]
  - DIFFICULTY IN WALKING [None]
